FAERS Safety Report 6768844-9 (Version None)
Quarter: 2010Q2

REPORT INFORMATION
  Report Type: 
  Country: None (occurrence: None)
  Receive Date: 20100614
  Receipt Date: 20100607
  Transmission Date: 20101027
  Serious: Yes (Other)
  Sender: FDA-Public Use
  Company Number: US-AMGEN-QUU416841

PATIENT
  Sex: Male

DRUGS (3)
  1. NPLATE [Suspect]
     Indication: IDIOPATHIC THROMBOCYTOPENIC PURPURA
     Dates: start: 20091221, end: 20100512
  2. CORTICOSTEROIDS [Concomitant]
     Dates: start: 20081220, end: 20090128
  3. IMMU-G [Concomitant]
     Dates: start: 20091203, end: 20091204

REACTIONS (3)
  - DRUG INEFFECTIVE [None]
  - PLEURAL EFFUSION [None]
  - SMALL INTESTINAL OBSTRUCTION [None]
